FAERS Safety Report 12652656 (Version 1)
Quarter: 2016Q3

REPORT INFORMATION
  Report Type: Spontaneous
  Country: PL (occurrence: PL)
  Receive Date: 20160815
  Receipt Date: 20160815
  Transmission Date: 20161109
  Serious: Yes (Hospitalization)
  Sender: FDA-Public Use
  Company Number: PL-AKORN PHARMACEUTICALS-2016AKN00514

PATIENT
  Age: 18 Year
  Sex: Female

DRUGS (2)
  1. UNSPECIFIED ANTIDEPRESSANT [Concomitant]
     Route: 065
  2. ISOTRETINOIN [Suspect]
     Active Substance: ISOTRETINOIN
     Indication: ACNE
     Route: 061

REACTIONS (1)
  - Major depression [Recovered/Resolved]
